FAERS Safety Report 19843384 (Version 2)
Quarter: 2021Q4

REPORT INFORMATION
  Report Type: Spontaneous
  Country: US (occurrence: US)
  Receive Date: 20210917
  Receipt Date: 20211006
  Transmission Date: 20220303
  Serious: Yes (Hospitalization, Other)
  Sender: FDA-Public Use
  Company Number: US-BIOVITRUM-2021US8270

PATIENT
  Sex: Female
  Weight: 8 kg

DRUGS (20)
  1. SYNAGIS [Suspect]
     Active Substance: PALIVIZUMAB
     Indication: Premature baby
     Dosage: SYNAGIS 100MG/1ML VL LIQUID; SYNAGIS 50MG/0.5ML VL LIQUID
     Route: 030
  2. CLONIDINE [Concomitant]
     Active Substance: CLONIDINE
     Dosage: 1MG/24HR PATCH TDWK
  3. AZITHROMYCIN ANHYDROUS [Concomitant]
     Active Substance: AZITHROMYCIN ANHYDROUS
     Dosage: 100 PERCENTAGE POWDER
  4. SILDENAFIL CITRATE [Concomitant]
     Active Substance: SILDENAFIL CITRATE
     Dosage: 100 PERCENTAGE POWDER
  5. RISPERIDONE [Concomitant]
     Active Substance: RISPERIDONE
  6. MELATONIN [Concomitant]
     Active Substance: MELATONIN
     Dosage: 100 PERCENTAGE POWDER
  7. SYMBICORT [Concomitant]
     Active Substance: BUDESONIDE\FORMOTEROL FUMARATE DIHYDRATE
     Dosage: 160-4.5 MCG HFA AER AD.
  8. CARAFATE [Concomitant]
     Active Substance: SUCRALFATE
     Dosage: 1 G/10 ML.
  9. ATROVENT [Concomitant]
     Active Substance: IPRATROPIUM BROMIDE
     Dosage: HFA 17 MCG HFA AER AD
  10. FUROSEMIDE [Concomitant]
     Active Substance: FUROSEMIDE
     Dosage: 10 MG/ML SOLUTION
  11. TPN ELECTROLYTES [Concomitant]
     Active Substance: CALCIUM CHLORIDE\MAGNESIUM CHLORIDE\POTASSIUM CHLORIDE\SODIUM ACETATE ANHYDROUS\SODIUM CHLORIDE
     Dosage: 35-20-5MEQ VIAL
  12. HEPARIN SODIUM [Concomitant]
     Active Substance: HEPARIN SODIUM
     Dosage: 100/ML (1) SYRINGE
  13. MULTI-VITE [Concomitant]
     Dosage: 9 MG/15 ML LIQUID
  14. FAMOTIDINE [Concomitant]
     Active Substance: FAMOTIDINE
     Dosage: 100 PERCENTAGE POWDER
  15. GABAPENTIN [Concomitant]
     Active Substance: GABAPENTIN
     Dosage: 100 PERCENTAGE POWDER
  16. ATIVAN [Concomitant]
     Active Substance: LORAZEPAM
     Dosage: 2 MG/ML VIAL
  17. SYNAGIS [Suspect]
     Active Substance: PALIVIZUMAB
     Indication: Dependence on oxygen therapy
  18. SYNAGIS [Suspect]
     Active Substance: PALIVIZUMAB
     Indication: Secondary hypertension
  19. ALBUTEROL SULFATE [Concomitant]
     Active Substance: ALBUTEROL SULFATE
  20. SYNAGIS [Suspect]
     Active Substance: PALIVIZUMAB
     Indication: Chronic respiratory disease

REACTIONS (3)
  - Lung disorder [Unknown]
  - Respiratory distress [Unknown]
  - Hypertension [Unknown]
